FAERS Safety Report 23882673 (Version 1)
Quarter: 2024Q2

REPORT INFORMATION
  Report Type: Other
  Country: ZA (occurrence: None)
  Receive Date: 20240522
  Receipt Date: 20240522
  Transmission Date: 20240716
  Serious: No
  Sender: FDA-Public Use
  Company Number: ZA-ROCHE-3565196

PATIENT
  Sex: Female

DRUGS (1)
  1. OCREVUS [Suspect]
     Active Substance: OCRELIZUMAB
     Indication: Multiple sclerosis
     Dosage: THEREAFTER 600MG EVERY 6 MONTHS
     Route: 041
     Dates: start: 20220706

REACTIONS (5)
  - Vertebral osteophyte [Unknown]
  - Facet joint syndrome [Unknown]
  - Haemangioma of bone [Unknown]
  - Cervical spinal stenosis [Unknown]
  - Demyelination [Unknown]
